FAERS Safety Report 14170986 (Version 3)
Quarter: 2017Q4

REPORT INFORMATION
  Report Type: Spontaneous
  Country: JP (occurrence: JP)
  Receive Date: 20171108
  Receipt Date: 20171128
  Transmission Date: 20180321
  Serious: Yes (Other)
  Sender: FDA-Public Use
  Company Number: JP-GILEAD-2017-0302942

PATIENT
  Age: 38 Year
  Sex: Female

DRUGS (5)
  1. TENOFOVIR DISOPROXIL FUMARATE. [Suspect]
     Active Substance: TENOFOVIR DISOPROXIL FUMARATE
     Indication: HEPATITIS B VIRUS TEST POSITIVE
     Dosage: 300 MG, QD
     Route: 048
  2. TENOFOVIR DISOPROXIL FUMARATE. [Suspect]
     Active Substance: TENOFOVIR DISOPROXIL FUMARATE
     Indication: HEPATITIS B DNA INCREASED
  3. TENOFOVIR DISOPROXIL FUMARATE. [Suspect]
     Active Substance: TENOFOVIR DISOPROXIL FUMARATE
     Indication: ALANINE AMINOTRANSFERASE INCREASED
  4. STRONGER NEO-MINOPHAGEN C          /02058101/ [Concomitant]
     Dosage: UNK
  5. TENOFOVIR DISOPROXIL FUMARATE. [Suspect]
     Active Substance: TENOFOVIR DISOPROXIL FUMARATE
     Indication: ASPARTATE AMINOTRANSFERASE INCREASED

REACTIONS (4)
  - Hepatic cirrhosis [Unknown]
  - Splenomegaly [Unknown]
  - Varicose vein [Unknown]
  - Maternal exposure during pregnancy [Recovered/Resolved]
